FAERS Safety Report 14034779 (Version 1)
Quarter: 2017Q4

REPORT INFORMATION
  Report Type: Spontaneous
  Country: IN (occurrence: IN)
  Receive Date: 20171003
  Receipt Date: 20171003
  Transmission Date: 20180321
  Serious: Yes (Other)
  Sender: FDA-Public Use
  Company Number: IN-JNJFOC-20170929458

PATIENT
  Sex: Female

DRUGS (3)
  1. TRAMADOL HYDROCHLORIDE. [Suspect]
     Active Substance: TRAMADOL HYDROCHLORIDE
     Indication: PROCEDURAL PAIN
     Route: 030
  2. TRAMADOL HYDROCHLORIDE. [Suspect]
     Active Substance: TRAMADOL HYDROCHLORIDE
     Indication: PROCEDURAL PAIN
     Dosage: 5-6 INJECTIONS PER DAY
     Route: 030
  3. TRAMADOL HYDROCHLORIDE. [Suspect]
     Active Substance: TRAMADOL HYDROCHLORIDE
     Indication: PROCEDURAL PAIN
     Route: 030

REACTIONS (10)
  - Prescription drug used without a prescription [Unknown]
  - Drug dependence [Recovering/Resolving]
  - Euphoric mood [Recovering/Resolving]
  - Drug tolerance [Unknown]
  - Product use in unapproved indication [Unknown]
  - Infusion site abscess [Unknown]
  - Injection site swelling [Unknown]
  - Off label use [Unknown]
  - Drug abuse [Unknown]
  - Withdrawal syndrome [Recovering/Resolving]
